FAERS Safety Report 8797352 (Version 2)
Quarter: 2012Q4

REPORT INFORMATION
  Report Type: 
  Country: US (occurrence: US)
  Receive Date: 20120920
  Receipt Date: 20121101
  Transmission Date: 20130627
  Serious: Yes (Hospitalization, Other)
  Sender: FDA-Public Use
  Company Number: US-PFIZER INC-2012229961

PATIENT
  Age: 16 Year
  Sex: Female
  Weight: 54.4 kg

DRUGS (7)
  1. GEODON [Suspect]
     Indication: SCHIZOPHRENIA
     Dosage: 20 mg, 1x/day at bedtime
     Route: 048
     Dates: start: 20120827, end: 20120910
  2. GEODON [Suspect]
     Dosage: 20 mg, 2x/day
     Route: 048
     Dates: start: 20120911, end: 20120914
  3. GEODON [Suspect]
     Dosage: 20 mg, 1x/day
     Route: 048
     Dates: start: 20120915, end: 20120916
  4. RISPERDAL [Suspect]
     Indication: HALLUCINATION
     Dosage: 20 mg, daily
  5. RISPERDAL [Suspect]
     Indication: PARANOIA
  6. SEROQUEL [Suspect]
     Indication: HALLUCINATION
     Dosage: UNK
  7. SEROQUEL [Suspect]
     Indication: PARANOIA

REACTIONS (9)
  - Hallucination [Unknown]
  - Paranoia [Unknown]
  - Drug ineffective [Unknown]
  - Convulsion [Recovering/Resolving]
  - Off label use [Unknown]
  - Amnesia [Recovering/Resolving]
  - Dyspnoea [Unknown]
  - Dizziness [Unknown]
  - Dysphagia [Unknown]
